FAERS Safety Report 13975324 (Version 3)
Quarter: 2018Q1

REPORT INFORMATION
  Report Type: Spontaneous
  Country: US (occurrence: US)
  Receive Date: 20170915
  Receipt Date: 20180226
  Transmission Date: 20180508
  Serious: Yes (Other)
  Sender: FDA-Public Use
  Company Number: US-VISTAPHARM, INC.-VER201709-000600

PATIENT
  Age: 67 Year
  Sex: Female

DRUGS (15)
  1. LAMOTRIGINE. [Concomitant]
     Active Substance: LAMOTRIGINE
     Indication: PAIN MANAGEMENT
  2. MELOXICAM. [Concomitant]
     Active Substance: MELOXICAM
     Indication: PAIN MANAGEMENT
  3. OXACARBAZEPINE [Concomitant]
     Indication: PAIN MANAGEMENT
  4. MORPHINE [Suspect]
     Active Substance: MORPHINE
     Indication: BACK PAIN
     Route: 037
  5. METHADONE [Concomitant]
     Active Substance: METHADONE HYDROCHLORIDE
  6. FLUOXETINE [Concomitant]
     Active Substance: FLUOXETINE HYDROCHLORIDE
     Indication: PAIN MANAGEMENT
  7. HYDROCODONE [Concomitant]
     Active Substance: HYDROCODONE
     Indication: BREAKTHROUGH PAIN
  8. CLONIDINE. [Concomitant]
     Active Substance: CLONIDINE
     Indication: PAIN MANAGEMENT
  9. OXYCODONE [Concomitant]
     Active Substance: OXYCODONE
     Indication: BREAKTHROUGH PAIN
  10. FENTANYL TRANSDERMAL SYSTEM [Concomitant]
     Active Substance: FENTANYL
     Indication: PAIN
  11. MIRTAZEPINE [Concomitant]
     Active Substance: MIRTAZAPINE
     Indication: PAIN MANAGEMENT
  12. NAPROXEN. [Concomitant]
     Active Substance: NAPROXEN
     Indication: PAIN MANAGEMENT
  13. PREGABALIN. [Concomitant]
     Active Substance: PREGABALIN
     Indication: PAIN MANAGEMENT
  14. BURSA INJECTION [Concomitant]
  15. METHADONE [Concomitant]
     Active Substance: METHADONE HYDROCHLORIDE

REACTIONS (5)
  - Constipation [Unknown]
  - Pain [Recovering/Resolving]
  - Small intestinal obstruction [Unknown]
  - Drug ineffective [Unknown]
  - Pneumonia [Unknown]
